FAERS Safety Report 5223268-0 (Version None)
Quarter: 2007Q1

REPORT INFORMATION
  Report Type: 
  Country: None (occurrence: None)
  Receive Date: 20061201
  Receipt Date: 20060823
  Transmission Date: 20070707
  Serious: No
  Sender: FDA-Public Use
  Company Number: 2005PV003302

PATIENT
  Age: 60 Year
  Sex: Female
  Weight: 97.5234 kg

DRUGS (3)
  1. BYETTA [Suspect]
     Indication: DIABETES MELLITUS NON-INSULIN-DEPENDENT
     Dosage: SEE IMAGE
     Route: 058
     Dates: start: 20050616, end: 20050715
  2. BYETTA [Suspect]
     Indication: DIABETES MELLITUS NON-INSULIN-DEPENDENT
     Dosage: SEE IMAGE
     Route: 058
     Dates: start: 20050716
  3. GLUCOPHAGE [Concomitant]

REACTIONS (5)
  - DYSGEUSIA [None]
  - NAUSEA [None]
  - PAIN [None]
  - WEIGHT DECREASED [None]
  - WEIGHT INCREASED [None]
